FAERS Safety Report 13578067 (Version 1)
Quarter: 2017Q2

REPORT INFORMATION
  Report Type: Spontaneous
  Country: US (occurrence: US)
  Receive Date: 20170524
  Receipt Date: 20170524
  Transmission Date: 20170830
  Serious: No
  Sender: FDA-Public Use
  Company Number: US-BAYER-2017-097942

PATIENT
  Sex: Female

DRUGS (2)
  1. MIRALAX [Suspect]
     Active Substance: POLYETHYLENE GLYCOL 3350
     Dosage: UNK
  2. MYLANTA AR [Concomitant]
     Dosage: UNK

REACTIONS (4)
  - Circumstance or information capable of leading to medication error [Unknown]
  - Diarrhoea [Unknown]
  - Dehydration [Unknown]
  - Dizziness [Unknown]
